FAERS Safety Report 22707797 (Version 2)
Quarter: 2023Q4

REPORT INFORMATION
  Report Type: Spontaneous
  Country: CA (occurrence: CA)
  Receive Date: 20230714
  Receipt Date: 20231222
  Transmission Date: 20240109
  Serious: Yes (Hospitalization, Other)
  Sender: FDA-Public Use
  Company Number: CA-BAUSCH-BL-2023-010552

PATIENT
  Age: 59 Year
  Sex: Female
  Weight: 54 kg

DRUGS (19)
  1. DIAZEPAM [Suspect]
     Active Substance: DIAZEPAM
     Indication: Cancer pain
     Dosage: NOT SPECIFIED
     Route: 065
  2. DIAZEPAM [Suspect]
     Active Substance: DIAZEPAM
     Indication: Breast cancer metastatic
     Route: 065
  3. DEXAMETHASONE [Suspect]
     Active Substance: DEXAMETHASONE
     Indication: Cancer pain
     Dosage: NOT SPECIFIED
     Route: 065
  4. DEXAMETHASONE [Suspect]
     Active Substance: DEXAMETHASONE
     Indication: Breast cancer metastatic
  5. GABAPENTIN [Suspect]
     Active Substance: GABAPENTIN
     Indication: Cancer pain
     Dosage: NOT SPECIFIED
     Route: 065
  6. GABAPENTIN [Suspect]
     Active Substance: GABAPENTIN
     Indication: Breast cancer metastatic
     Dosage: NOT SPECIFIED
     Route: 065
  7. GABAPENTIN [Suspect]
     Active Substance: GABAPENTIN
     Route: 065
  8. METHADOSE SUGAR-FREE [Suspect]
     Active Substance: METHADONE HYDROCHLORIDE
     Indication: Cancer pain
     Route: 065
  9. METHADOSE SUGAR-FREE [Suspect]
     Active Substance: METHADONE HYDROCHLORIDE
     Indication: Breast cancer metastatic
     Route: 065
  10. METHADOSE SUGAR-FREE [Suspect]
     Active Substance: METHADONE HYDROCHLORIDE
     Dosage: SOLUTION ORAL
     Route: 065
  11. METHADOSE SUGAR-FREE [Suspect]
     Active Substance: METHADONE HYDROCHLORIDE
     Dosage: SOLUTION ORAL
     Route: 065
  12. METHADOSE SUGAR-FREE [Suspect]
     Active Substance: METHADONE HYDROCHLORIDE
     Route: 065
  13. METHADOSE SUGAR-FREE [Suspect]
     Active Substance: METHADONE HYDROCHLORIDE
     Dosage: SOLUTION ORAL
     Route: 065
  14. METHADOSE SUGAR-FREE [Suspect]
     Active Substance: METHADONE HYDROCHLORIDE
     Dosage: METHADONE
     Route: 065
  15. METHADOSE SUGAR-FREE [Suspect]
     Active Substance: METHADONE HYDROCHLORIDE
     Dosage: METHADONE
     Route: 065
  16. METHADOSE SUGAR-FREE [Suspect]
     Active Substance: METHADONE HYDROCHLORIDE
     Dosage: METHADONE
     Route: 065
  17. MORPHINE [Suspect]
     Active Substance: MORPHINE
     Indication: Breast cancer metastatic
     Route: 058
  18. MORPHINE [Suspect]
     Active Substance: MORPHINE
     Indication: Cancer pain
     Dosage: MORPHINE SULFATE
     Route: 058
  19. MORPHINE [Concomitant]
     Active Substance: MORPHINE
     Indication: Cancer pain
     Route: 058

REACTIONS (4)
  - Drug ineffective [Unknown]
  - Drug ineffective for unapproved indication [Unknown]
  - Off label use [Unknown]
  - No adverse event [Unknown]
